FAERS Safety Report 20336711 (Version 1)
Quarter: 2022Q1

REPORT INFORMATION
  Report Type: Spontaneous
  Country: US (occurrence: None)
  Receive Date: 20220114
  Receipt Date: 20220114
  Transmission Date: 20220423
  Serious: Yes (Hospitalization)
  Sender: FDA-Public Use
  Company Number: None

PATIENT
  Sex: Female

DRUGS (1)
  1. HUMIRA [Suspect]
     Active Substance: ADALIMUMAB
     Indication: Rheumatoid arthritis
     Dosage: 40 / 0.4 MG/ML;? INJECT 1 PEN UNDER THE SKIN (SUBCUTANEOUS INJECTION) EVERY OTHER WEEK.
     Route: 058
     Dates: start: 20190117

REACTIONS (1)
  - Intentional dose omission [None]
